FAERS Safety Report 10234755 (Version 1)
Quarter: 2014Q1

REPORT INFORMATION
  Report Type: Spontaneous
  Country: US (occurrence: None)
  Receive Date: 20140306
  Receipt Date: 20140306
  Transmission Date: 20141002
  Serious: Yes (Disabling, Other)
  Sender: FDA-Public Use
  Company Number: 163-21880-13050311

PATIENT
  Age: 74 Year
  Sex: Female
  Weight: 61.69 kg

DRUGS (13)
  1. REVLIMID (LENALIDOMIDE) (10 MILLIGRAM, CAPSULES) [Suspect]
     Indication: PLASMA CELL MYELOMA
     Dosage: 10 MG, 21 IN 28 D, PO
     Route: 048
     Dates: start: 20110723
  2. VELCADE (BORTEZOMIB) (INJECTION) [Suspect]
     Indication: PRODUCT USED FOR UNKNOWN INDICATION
     Dosage: NOT PROVIDED, UNK
  3. DECADRON [Suspect]
     Indication: PRODUCT USED FOR UNKNOWN INDICATION
     Dosage: AS DIRECTED, UNK
  4. SOTALOL HCL (SOTALOL HYDROCHLORIDE) [Concomitant]
  5. FENTANYL (FENTANYL) [Concomitant]
  6. GABAPENTIN (GABAPENTIN) [Concomitant]
  7. XANAX (ALPRAZOLAM) [Concomitant]
  8. ASPIRIN LOW (ACETYLSALICYLIC ACID) [Concomitant]
  9. LEVOTHYROXINE (LEVOTHYROXINE) [Concomitant]
  10. POTASSIUM CHLORIDE (POTASSIUM CHLORIDE) [Concomitant]
  11. RIVAROXABAN (RIVAROXABAN) [Concomitant]
  12. ZOFRAN (ONDANSETRON HYDROCHLORIDE) [Concomitant]
  13. CYMBALTA [Concomitant]

REACTIONS (3)
  - Herpes zoster [None]
  - Pain [None]
  - Drug dose omission [None]
